FAERS Safety Report 7233481-9 (Version None)
Quarter: 2011Q1

REPORT INFORMATION
  Report Type: 
  Country: None (occurrence: None)
  Receive Date: 20110107
  Receipt Date: 20110106
  Transmission Date: 20110831
  Serious: Yes (Hospitalization, Other)
  Sender: FDA-Public Use
  Company Number: 2010S1000412

PATIENT
  Age: 62 Year
  Sex: Female

DRUGS (2)
  1. DARVOCET-N 100 [Suspect]
     Indication: PROCEDURAL PAIN
     Dosage: 100 MG; Q6H; PO
     Route: 048
     Dates: start: 20040101, end: 20101101
  2. INSULIN [Concomitant]

REACTIONS (2)
  - VASCULAR GRAFT [None]
  - CARDIAC PACEMAKER INSERTION [None]
